FAERS Safety Report 19174222 (Version 2)
Quarter: 2021Q2

REPORT INFORMATION
  Report Type: Spontaneous
  Country: TR (occurrence: ER)
  Receive Date: 20210423
  Receipt Date: 20210507
  Transmission Date: 20210717
  Serious: Yes (Death, Hospitalization, Other)
  Sender: FDA-Public Use
  Company Number: ER-ASSERTIO THERAPEUTICS, INC.-ER-2021AST000055

PATIENT

DRUGS (1)
  1. DICLOFENAC [Suspect]
     Active Substance: DICLOFENAC
     Indication: PAIN
     Dosage: 40 MG, SINGLE
     Route: 030

REACTIONS (1)
  - Rhabdomyolysis [Fatal]
